FAERS Safety Report 10050972 (Version 1)
Quarter: 2014Q2

REPORT INFORMATION
  Report Type: Report from Study
  Country: DE (occurrence: DE)
  Receive Date: 20140401
  Receipt Date: 20140401
  Transmission Date: 20141212
  Serious: Yes (Hospitalization)
  Sender: FDA-Public Use
  Company Number: DE-GLAXOSMITHKLINE-B0980502A

PATIENT
  Age: 69 Year
  Sex: Female
  Weight: 81 kg

DRUGS (6)
  1. LAPATINIB [Suspect]
     Indication: BREAST CANCER METASTATIC
     Dosage: 1000MG PER DAY
     Route: 048
     Dates: start: 20130916
  2. ERIBULIN [Suspect]
     Indication: BREAST CANCER METASTATIC
     Dosage: 1.76MGM2 CYCLIC
     Route: 042
     Dates: start: 20130916
  3. LISINOPRIL [Concomitant]
     Dosage: 2.5MG PER DAY
     Route: 048
  4. BISOPROLOL [Concomitant]
     Dosage: 5MG PER DAY
     Route: 048
  5. SIMVASTATIN [Concomitant]
     Dosage: 10MG PER DAY
     Route: 048
  6. BERLTHYROX [Concomitant]
     Dosage: 75MG PER DAY
     Route: 048

REACTIONS (1)
  - Arrhythmia [Recovered/Resolved]
